FAERS Safety Report 21312024 (Version 2)
Quarter: 2022Q3

REPORT INFORMATION
  Report Type: Report from Study
  Country: US (occurrence: US)
  Receive Date: 20220909
  Receipt Date: 20220920
  Transmission Date: 20221026
  Serious: Yes (Other)
  Sender: FDA-Public Use
  Company Number: US-JNJFOC-20220900643

PATIENT
  Age: 55 Year
  Sex: Female

DRUGS (3)
  1. SPRAVATO [Suspect]
     Active Substance: ESKETAMINE
     Indication: Major depression
     Dosage: ^56 MG, 2 TOTAL DOSES^
     Dates: start: 20220623, end: 20220630
  2. SPRAVATO [Suspect]
     Active Substance: ESKETAMINE
     Indication: Depression
     Dosage: ^84 MG, 11 TOTAL DOSES^
     Dates: start: 20220705, end: 20220825
  3. SPRAVATO [Suspect]
     Active Substance: ESKETAMINE
     Dosage: ^84 MG, 1 TOTAL DOSE^
     Dates: start: 20220830, end: 20220830

REACTIONS (5)
  - Dyspnoea [Not Recovered/Not Resolved]
  - Chest pain [Not Recovered/Not Resolved]
  - Blood pressure increased [Unknown]
  - Sedation [Recovered/Resolved]
  - Dissociation [Not Recovered/Not Resolved]

NARRATIVE: CASE EVENT DATE: 20220830
